FAERS Safety Report 9714795 (Version 1)
Quarter: 2013Q4

REPORT INFORMATION
  Report Type: Spontaneous
  Country: AT (occurrence: AT)
  Receive Date: 20131126
  Receipt Date: 20131126
  Transmission Date: 20140711
  Serious: Yes (Life-Threatening, Hospitalization, Other)
  Sender: FDA-Public Use
  Company Number: AT-ACTAVIS-2013-21080

PATIENT
  Age: 53 Year
  Sex: Male

DRUGS (2)
  1. IBUPROFEN (UNKNOWN) [Suspect]
     Indication: HEADACHE
     Dosage: 400 MG, SINGLE
     Route: 048
  2. ACETYLSALICYLIC ACID [Suspect]
     Indication: ANTIPLATELET THERAPY
     Dosage: UNK
     Route: 065

REACTIONS (3)
  - Kounis syndrome [Recovered/Resolved]
  - Analgesic asthma syndrome [Recovered/Resolved]
  - Cross sensitivity reaction [Unknown]
